FAERS Safety Report 24564939 (Version 2)
Quarter: 2024Q4

REPORT INFORMATION
  Report Type: Spontaneous
  Country: SG (occurrence: SG)
  Receive Date: 20241030
  Receipt Date: 20241225
  Transmission Date: 20250114
  Serious: Yes (Other)
  Sender: CSL BEHRING
  Company Number: SG-BEH-2024183173

PATIENT
  Age: 5 Decade
  Sex: Female

DRUGS (1)
  1. HUMAN IMMUNOGLOBULIN G [Suspect]
     Active Substance: HUMAN IMMUNOGLOBULIN G
     Indication: Guillain-Barre syndrome
     Dosage: UNK
     Route: 017

REACTIONS (7)
  - Reversible cerebral vasoconstriction syndrome [Recovered/Resolved]
  - Headache [Recovered/Resolved]
  - Blood pressure fluctuation [Recovered/Resolved]
  - Hemiparesis [Recovered/Resolved]
  - Facial paralysis [Recovered/Resolved]
  - Muscular weakness [Recovered/Resolved]
  - Muscular weakness [Recovered/Resolved]
